FAERS Safety Report 14532141 (Version 1)
Quarter: 2018Q1

REPORT INFORMATION
  Report Type: Spontaneous
  Country: RU (occurrence: RU)
  Receive Date: 20180214
  Receipt Date: 20180214
  Transmission Date: 20180509
  Serious: Yes (Other)
  Sender: FDA-Public Use
  Company Number: RU-ARALEZ PHARMACEUTICALS R+D INC.-2018-ARA-000343

PATIENT
  Age: 64 Year
  Sex: Female
  Weight: 60 kg

DRUGS (4)
  1. ATORIS [Suspect]
     Active Substance: ATORVASTATIN CALCIUM
     Indication: PRODUCT USED FOR UNKNOWN INDICATION
     Dosage: UNK
  2. PERINEVA [Suspect]
     Active Substance: PERINDOPRIL ERBUMINE
     Indication: PRODUCT USED FOR UNKNOWN INDICATION
     Dosage: UNK
     Route: 065
  3. METOPROLOL SUCCINATE. [Suspect]
     Active Substance: METOPROLOL SUCCINATE
     Indication: PRODUCT USED FOR UNKNOWN INDICATION
     Dosage: UNK
     Route: 048
  4. BRILINTA [Suspect]
     Active Substance: TICAGRELOR
     Indication: ANGINA UNSTABLE
     Dosage: 90 MG, BID
     Dates: start: 20170901

REACTIONS (2)
  - Upper limb fracture [Unknown]
  - Blood pressure decreased [Not Recovered/Not Resolved]
